FAERS Safety Report 11069807 (Version 1)
Quarter: 2015Q2

REPORT INFORMATION
  Report Type: Spontaneous
  Country: US (occurrence: US)
  Receive Date: 20150427
  Receipt Date: 20150427
  Transmission Date: 20150821
  Serious: No
  Sender: FDA-Public Use
  Company Number: US-B.I. PHARMACEUTICALS,INC./RIDGEFIELD-2015-BI-20286BP

PATIENT
  Age: 78 Year
  Sex: Female
  Weight: 104 kg

DRUGS (19)
  1. NEXIUM [Concomitant]
     Active Substance: ESOMEPRAZOLE MAGNESIUM
     Indication: GASTROOESOPHAGEAL REFLUX DISEASE
     Dosage: 40 MG
     Route: 048
     Dates: start: 2010
  2. SPIRIVA [Suspect]
     Active Substance: TIOTROPIUM BROMIDE MONOHYDRATE
     Dosage: 18 MCG
     Route: 048
     Dates: start: 20150414, end: 20150414
  3. NARATRIPTAN [Concomitant]
     Active Substance: NARATRIPTAN HYDROCHLORIDE
     Indication: HEADACHE
     Route: 048
     Dates: start: 2002
  4. SYMBICORT [Concomitant]
     Active Substance: BUDESONIDE\FORMOTEROL FUMARATE DIHYDRATE
     Indication: PRODUCT USED FOR UNKNOWN INDICATION
     Dosage: 2 PUF
     Route: 055
     Dates: start: 201409
  5. MONTELUKAST [Concomitant]
     Active Substance: MONTELUKAST SODIUM
     Indication: ASTHMA
     Dosage: 10 MG
     Route: 048
     Dates: start: 2013
  6. SPIRIVA [Suspect]
     Active Substance: TIOTROPIUM BROMIDE MONOHYDRATE
     Indication: BRONCHITIS CHRONIC
     Dosage: 18 MCG
     Route: 055
     Dates: start: 201403
  7. PROPRANOLOL ER [Concomitant]
     Indication: MIGRAINE
     Dosage: 160 MG
     Route: 048
     Dates: start: 2000
  8. PROPRANOLOL ER [Concomitant]
     Indication: HEADACHE
  9. LANTUS [Concomitant]
     Active Substance: INSULIN GLARGINE
     Indication: DIABETES MELLITUS
     Dosage: 40 U
     Route: 058
     Dates: start: 2013
  10. NARATRIPTAN [Concomitant]
     Active Substance: NARATRIPTAN HYDROCHLORIDE
     Indication: MIGRAINE
  11. JANUVIA [Concomitant]
     Active Substance: SITAGLIPTIN PHOSPHATE
     Indication: DIABETES MELLITUS
     Dosage: 100 MG
     Route: 048
     Dates: start: 2010
  12. AMLODIPINE [Concomitant]
     Active Substance: AMLODIPINE BESYLATE
     Indication: BLOOD PRESSURE FLUCTUATION
     Dosage: 5 MG
     Route: 048
     Dates: start: 2010
  13. POTASSIUM CL ER [Concomitant]
     Indication: MINERAL SUPPLEMENTATION
     Dosage: 20 MEQ
     Route: 048
     Dates: start: 2014
  14. TRAMADOL [Concomitant]
     Active Substance: TRAMADOL
     Indication: HIP ARTHROPLASTY
     Route: 048
     Dates: start: 201407
  15. ALLOPURINOL. [Concomitant]
     Active Substance: ALLOPURINOL
     Indication: GOUT
     Dosage: 200 MG
     Route: 048
     Dates: start: 2011
  16. EDECRIN [Concomitant]
     Active Substance: ETHACRYNIC ACID
     Indication: PROPHYLAXIS
     Dosage: 75 MG
     Route: 048
     Dates: start: 2014
  17. SIMVASTATIN. [Concomitant]
     Active Substance: SIMVASTATIN
     Indication: BLOOD CHOLESTEROL INCREASED
     Dosage: 20 MG
     Route: 048
     Dates: start: 2008
  18. PREMARIN [Concomitant]
     Active Substance: ESTROGENS, CONJUGATED
     Indication: HYSTERECTOMY
     Dosage: 0.625 MG
     Route: 048
     Dates: start: 1979
  19. SYNTHROID [Concomitant]
     Active Substance: LEVOTHYROXINE SODIUM
     Indication: THYROID DISORDER
     Dosage: 0.05 MG
     Route: 048
     Dates: start: 2009

REACTIONS (2)
  - Incorrect route of drug administration [Recovered/Resolved]
  - Aphonia [Recovered/Resolved]

NARRATIVE: CASE EVENT DATE: 201403
